FAERS Safety Report 6771302-9 (Version None)
Quarter: 2010Q2

REPORT INFORMATION
  Report Type: 
  Country: None (occurrence: None)
  Receive Date: 20100520
  Receipt Date: 20091109
  Transmission Date: 20101027
  Serious: Yes (Other)
  Sender: FDA-Public Use
  Company Number: 2008038300

PATIENT
  Age: 68 Year
  Sex: Female

DRUGS (6)
  1. PROVERA [Suspect]
     Indication: HORMONE REPLACEMENT THERAPY
     Dosage: 2.5 MG, ORAL
     Route: 048
     Dates: start: 19910130, end: 19960520
  2. PREMARIN [Suspect]
     Indication: HORMONE REPLACEMENT THERAPY
     Dosage: 0.625 MG, ORAL
     Route: 048
     Dates: start: 19910130, end: 19960520
  3. PREMPRO [Suspect]
     Indication: HORMONE REPLACEMENT THERAPY
     Dosage: 0.625/2.5MG, ORAL
     Route: 048
     Dates: start: 19960520, end: 19970506
  4. ASPIRIN [Concomitant]
  5. M.V.I. (ASCORBIC ACID, DEXPANTHENOL, ERGOCALCIFEROL, NICOTINAMIDE, PYR [Concomitant]
  6. FOLIC ACID [Concomitant]

REACTIONS (1)
  - BREAST CANCER [None]
